FAERS Safety Report 9380622 (Version 1)
Quarter: 2013Q3

REPORT INFORMATION
  Report Type: Spontaneous
  Country: US (occurrence: US)
  Receive Date: 20130702
  Receipt Date: 20130702
  Transmission Date: 20140515
  Serious: Yes (Death, Other)
  Sender: FDA-Public Use
  Company Number: US-CELGENEUS-163-50794-13070134

PATIENT
  Age: 77 Year
  Sex: Male

DRUGS (3)
  1. VIDAZA [Suspect]
     Indication: MYELODYSPLASTIC SYNDROME
     Route: 065
  2. ERYTHROPOIETIN [Concomitant]
     Indication: MYELODYSPLASTIC SYNDROME
     Route: 065
  3. PREDNISONE [Concomitant]
     Indication: PROPHYLAXIS
     Route: 048

REACTIONS (3)
  - Death [Fatal]
  - Interstitial granulomatous dermatitis [Not Recovered/Not Resolved]
  - Leukaemia cutis [Unknown]
